FAERS Safety Report 6519068-1 (Version None)
Quarter: 2009Q4

REPORT INFORMATION
  Report Type: 
  Country: None (occurrence: None)
  Receive Date: 20091228
  Receipt Date: 20091221
  Transmission Date: 20100525
  Serious: Yes (Hospitalization)
  Sender: FDA-Public Use
  Company Number: NL-ROCHE-675775

PATIENT
  Sex: Female

DRUGS (18)
  1. BEVACIZUMAB [Suspect]
     Indication: BREAST CANCER METASTATIC
     Dosage: LAST DATE OF ADMINISTRATION: 25 NOV 2009, THERAPY DURATION: 01, TEMPORARILY DISCONTINUED
     Route: 042
     Dates: start: 20091125
  2. PACLITAXEL [Suspect]
     Indication: BREAST CANCER METASTATIC
     Dosage: LAST DATE OF ADMINISTRATION: 25 NOV 2009, THERAPY DURATION: 01, TEMPORARILY DISCONTINUED
     Route: 042
     Dates: start: 20091125
  3. PAMIDRONATE DISODIUM [Concomitant]
     Dates: start: 20081006
  4. PARACETAMOL [Concomitant]
     Dosage: FREQUENCY: PRN
  5. ACETYLSALICYLIC ACID SRT [Concomitant]
     Dosage: DRUG: ACETYLSALIC
     Dates: start: 20030423
  6. BISOPROLOL [Concomitant]
     Dates: start: 20030423
  7. HYZAAR [Concomitant]
     Dosage: DAILY DOSE: 50/ 12.5
     Dates: start: 20070301
  8. DILTIAZEM HCL [Concomitant]
     Dates: start: 20030423
  9. PROMETHAZINE [Concomitant]
     Dates: start: 20030423
  10. BROMAZEPAM [Concomitant]
     Dates: start: 20030423
  11. OMEPRAZOLE [Concomitant]
     Dates: start: 20030423
  12. SIMVASTATIN [Concomitant]
     Dates: start: 20070301
  13. FENTANYL-100 [Concomitant]
     Dosage: DAILY DOSE: 12UG/ H
     Dates: start: 20091116
  14. OXYNORM [Concomitant]
     Dates: start: 20091116
  15. METOCLOPRAMIDE [Concomitant]
     Dates: start: 20091123
  16. MOVICOLON [Concomitant]
     Dosage: DAILY DOSE: 1X
     Dates: start: 20091116
  17. BETOPTIC [Concomitant]
     Dosage: DAILY DOSE: 2DD 2.5MG/ML
     Dates: start: 20070301
  18. TRAVATAN [Concomitant]
     Dosage: DRUG: TRAVATAM,DAILY DOSE: 10UG/ ML
     Dates: start: 20070301

REACTIONS (5)
  - ABDOMINAL PAIN [None]
  - BODY TEMPERATURE INCREASED [None]
  - COUGH [None]
  - DECREASED APPETITE [None]
  - HEADACHE [None]
